FAERS Safety Report 23088014 (Version 2)
Quarter: 2023Q4

REPORT INFORMATION
  Report Type: Spontaneous
  Country: US (occurrence: US)
  Receive Date: 20231020
  Receipt Date: 20231113
  Transmission Date: 20240110
  Serious: Yes (Hospitalization, Other)
  Sender: FDA-Public Use
  Company Number: US-MLMSERVICE-20231005-4590319-2

PATIENT
  Age: 62 Year
  Sex: Male

DRUGS (6)
  1. PHENYLEPHRINE [Suspect]
     Active Substance: PHENYLEPHRINE HYDROCHLORIDE
     Indication: Vasopressive therapy
     Dosage: 300 MICROGRAM 1 MIN (300 MCG/MIN)
     Route: 065
  2. PHENYLEPHRINE [Suspect]
     Active Substance: PHENYLEPHRINE HYDROCHLORIDE
     Indication: Shock haemorrhagic
  3. VASOPRESSIN [Suspect]
     Active Substance: VASOPRESSIN
     Indication: Vasopressive therapy
     Dosage: 0.03 INTERNATIONAL UNIT 1 MIN (0.03 UNITS/MIN)
     Route: 065
  4. VASOPRESSIN [Suspect]
     Active Substance: VASOPRESSIN
     Indication: Shock haemorrhagic
  5. NOREPINEPHRINE [Suspect]
     Active Substance: NOREPINEPHRINE
     Indication: Vasopressive therapy
     Dosage: 25 MICROGRAM 1 MIN (25 MCG/MIN)
     Route: 065
  6. NOREPINEPHRINE [Suspect]
     Active Substance: NOREPINEPHRINE
     Indication: Shock haemorrhagic

REACTIONS (3)
  - Gangrene [Unknown]
  - Necrosis ischaemic [Recovering/Resolving]
  - Peripheral ischaemia [Recovering/Resolving]
